FAERS Safety Report 21372353 (Version 1)
Quarter: 2022Q3

REPORT INFORMATION
  Report Type: Spontaneous
  Country: IT (occurrence: IT)
  Receive Date: 20220924
  Receipt Date: 20220924
  Transmission Date: 20221027
  Serious: Yes (Life-Threatening, Hospitalization)
  Sender: FDA-Public Use
  Company Number: None

PATIENT
  Age: 57 Year
  Sex: Male
  Weight: 61 kg

DRUGS (7)
  1. OXALIPLATIN [Suspect]
     Active Substance: OXALIPLATIN
     Indication: Adenocarcinoma pancreas
     Dosage: 85 MG/M2 (85 MG/MQ CON RIDUZIONE DEL 21% (DOSE TOTALE 110 MG) DA RIPETERE DOPO 14 GIORNI)
     Route: 042
     Dates: start: 20220819, end: 20220819
  2. FLUOROURACIL [Suspect]
     Active Substance: FLUOROURACIL
     Indication: Adenocarcinoma pancreas
     Dosage: 400 MG/M2 (400 MG/MQ RIDOTTO DELL^ 8% (DOSE TOTALE 600 MG) DA RIPETERE DOPO 14 GIORNI)
     Route: 040
     Dates: start: 20220819, end: 20220819
  3. FLUOROURACIL [Suspect]
     Active Substance: FLUOROURACIL
     Dosage: 2400 MG/M2 (2400 MG/MQ RIDOTTO DEL 16% (DOSE TOTALE: 3300 MG)
     Route: 041
     Dates: start: 20220819, end: 20220821
  4. IRINOTECAN [Suspect]
     Active Substance: IRINOTECAN
     Indication: Adenocarcinoma pancreas
     Dosage: 180 MG/M2 (180 MG/MQ RIDOTTO DEL 31% (DOSE TOTALE: 200 MG OGNI 14 GIORNI)
     Route: 042
     Dates: start: 20220819, end: 20220819
  5. DULOXETINE [Concomitant]
     Active Substance: DULOXETINE
     Indication: Depression
     Dosage: 60 MG, QD
     Route: 048
  6. TAVOR [Concomitant]
     Indication: Anxiety
     Dosage: 7.5 MG, QD (TAVOR 2.5 MG POSOLOGIA: 1 COMPRESSA TRE VOLTE AL D?)
     Route: 048
  7. BENSERAZIDE HYDROCHLORIDE\LEVODOPA [Concomitant]
     Active Substance: BENSERAZIDE HYDROCHLORIDE\LEVODOPA
     Indication: Parkinson^s disease
     Dosage: 600 MG, QD (MADOPAR 100 MG+ 25 MG POSOLOGIA: 2 COMPRESSE 3 VOLTE AL DI)
     Route: 048

REACTIONS (4)
  - Hypotension [Recovered/Resolved]
  - Dehydration [Recovered/Resolved]
  - Asthenia [Recovering/Resolving]
  - Diarrhoea [Recovered/Resolved]

NARRATIVE: CASE EVENT DATE: 20220826
